FAERS Safety Report 4307757-9 (Version None)
Quarter: 2004Q1

REPORT INFORMATION
  Report Type: 
  Country: None (occurrence: None)
  Receive Date: 20040225
  Receipt Date: 20030217
  Transmission Date: 20041129
  Serious: Yes (Other)
  Sender: FDA-Public Use
  Company Number: WAES 0302USA01758

PATIENT
  Age: 72 Year
  Sex: Female
  Weight: 52.1637 kg

DRUGS (9)
  1. ZOCOR [Suspect]
     Indication: BLOOD CHOLESTEROL INCREASED
     Dosage: 10 MG/ ; 40 MG/  :  DAILY/PO
     Route: 048
     Dates: start: 19971016, end: 20000210
  2. ZOCOR [Suspect]
     Indication: BLOOD CHOLESTEROL INCREASED
     Dosage: 10 MG/ ; 40 MG/  :  DAILY/PO
     Route: 048
     Dates: start: 20000211, end: 20030101
  3. FOSAMAX [Concomitant]
  4. LEVOXYL [Concomitant]
  5. NICORETTE [Concomitant]
  6. PREMARIN [Concomitant]
  7. PROTONIX [Concomitant]
  8. ALPRAZOLAM [Concomitant]
  9. CALCIUM CARBONATE [Concomitant]

REACTIONS (1)
  - NAUSEA [None]
